FAERS Safety Report 4706138-3 (Version None)
Quarter: 2005Q2

REPORT INFORMATION
  Report Type: 
  Country: None (occurrence: None)
  Receive Date: 20050627
  Receipt Date: 20050302
  Transmission Date: 20051028
  Serious: Yes (Other)
  Sender: FDA-Public Use
  Company Number: 2005039926

PATIENT
  Sex: Male
  Weight: 72.5755 kg

DRUGS (3)
  1. GLIBENCLAMIDE TABLET (GLIBENCLAMIDE) [Suspect]
     Indication: DIABETES MELLITUS
     Dosage: 5 MG (5 MG, 1 IN 1 D), ORAL
     Route: 048
  2. NORVASC [Concomitant]
  3. FUROSEMIDE [Concomitant]

REACTIONS (2)
  - HYPERGLYCAEMIA [None]
  - HYPOGLYCAEMIA [None]
